FAERS Safety Report 9884174 (Version 1)
Quarter: 2014Q1

REPORT INFORMATION
  Report Type: Spontaneous
  Country: US (occurrence: None)
  Receive Date: 20140207
  Receipt Date: 20140207
  Transmission Date: 20141002
  Serious: No
  Sender: FDA-Public Use
  Company Number: None

PATIENT
  Age: 44 Year
  Sex: Female
  Weight: 72.58 kg

DRUGS (1)
  1. TRAZODONE 50 MG [Suspect]
     Indication: INSOMNIA
     Route: 048
     Dates: start: 20140205, end: 20140205

REACTIONS (5)
  - Palpitations [None]
  - Anxiety [None]
  - Nasal congestion [None]
  - Chest pain [None]
  - Drug ineffective [None]
